FAERS Safety Report 15728573 (Version 2)
Quarter: 2019Q1

REPORT INFORMATION
  Report Type: Spontaneous
  Country: US (occurrence: US)
  Receive Date: 20181217
  Receipt Date: 20190117
  Transmission Date: 20190417
  Serious: No
  Sender: FDA-Public Use
  Company Number: US-HORIZON-RAV-0232-2018

PATIENT
  Age: 11 Year
  Sex: Male

DRUGS (4)
  1. RAVICTI [Suspect]
     Active Substance: GLYCEROL PHENYLBUTYRATE
     Indication: DERMATOMYOSITIS
     Dosage: 7 ML ONCE A WEEK
     Route: 048
     Dates: start: 20181005
  2. RANITIDINE. [Concomitant]
     Active Substance: RANITIDINE
  3. XATMEP [Concomitant]
     Active Substance: METHOTREXATE
  4. LEUCOVOR [Concomitant]

REACTIONS (4)
  - Nausea [Recovered/Resolved]
  - Vomiting [Recovered/Resolved]
  - Product administration error [Unknown]
  - Off label use [Unknown]
